FAERS Safety Report 17324834 (Version 1)
Quarter: 2020Q1

REPORT INFORMATION
  Report Type: Other
  Country: PT (occurrence: PT)
  Receive Date: 20200127
  Receipt Date: 20200127
  Transmission Date: 20200409
  Serious: Yes (Life-Threatening, Hospitalization, Disabling)
  Sender: FDA-Public Use
  Company Number: PT-NOSTRUM LABORATORIES, INC.-2079425

PATIENT
  Age: 82 Year
  Sex: Female

DRUGS (1)
  1. NITROFURANTOIN. [Suspect]
     Active Substance: NITROFURANTOIN
     Indication: URINARY TRACT INFECTION
     Route: 048

REACTIONS (3)
  - Pneumonitis [Recovered/Resolved with Sequelae]
  - Respiratory failure [Recovered/Resolved]
  - Drug-induced liver injury [Recovered/Resolved]
